FAERS Safety Report 24790730 (Version 1)
Quarter: 2024Q4

REPORT INFORMATION
  Report Type: Spontaneous
  Country: CN (occurrence: CN)
  Receive Date: 20241230
  Receipt Date: 20241230
  Transmission Date: 20250115
  Serious: Yes (Life-Threatening, Other)
  Sender: MERCK
  Company Number: CN-009507513-2412CHN008987

PATIENT
  Age: 45 Year
  Sex: Female
  Weight: 44 kg

DRUGS (3)
  1. CILASTATIN SODIUM\IMIPENEM [Suspect]
     Active Substance: CILASTATIN SODIUM\IMIPENEM
     Indication: Peritonitis
     Dosage: 500 MG, Q12H
     Route: 041
     Dates: start: 20241205, end: 20241223
  2. CILASTATIN SODIUM\IMIPENEM [Suspect]
     Active Substance: CILASTATIN SODIUM\IMIPENEM
     Indication: Azotaemia
  3. SODIUM CHLORIDE [Concomitant]
     Active Substance: SODIUM CHLORIDE
     Indication: Anti-infective therapy
     Dosage: 100 MILLILITER, Q12H
     Dates: start: 20241205

REACTIONS (3)
  - Mental disorder [Recovering/Resolving]
  - Metabolic encephalopathy [Unknown]
  - Infection [Unknown]

NARRATIVE: CASE EVENT DATE: 20241222
